FAERS Safety Report 10084305 (Version 3)
Quarter: 2015Q1

REPORT INFORMATION
  Report Type: Spontaneous
  Country: US (occurrence: US)
  Receive Date: 20140417
  Receipt Date: 20150303
  Transmission Date: 20150720
  Serious: Yes (Disabling, Other)
  Sender: FDA-Public Use
  Company Number: US-009507513-1404USA006912

PATIENT
  Sex: Male
  Weight: 71.66 kg

DRUGS (1)
  1. PROPECIA [Suspect]
     Active Substance: FINASTERIDE
     Indication: ANDROGENETIC ALOPECIA
     Dosage: 1 MG, QD
     Route: 048
     Dates: start: 200509, end: 201106

REACTIONS (18)
  - Lower limb fracture [Unknown]
  - Surgery [Unknown]
  - Loss of libido [Unknown]
  - Cognitive disorder [Not Recovered/Not Resolved]
  - Hyperlipidaemia [Unknown]
  - Alcohol abuse [Unknown]
  - Gastrooesophageal reflux disease [Unknown]
  - Semen volume abnormal [Unknown]
  - Rectal haemorrhage [Unknown]
  - Peptic ulcer [Unknown]
  - Spinal fracture [Unknown]
  - Road traffic accident [Unknown]
  - Sinusitis [Unknown]
  - Erectile dysfunction [Unknown]
  - Sexual dysfunction [Not Recovered/Not Resolved]
  - Hypertension [Unknown]
  - Hand fracture [Unknown]
  - Large intestine polyp [Unknown]

NARRATIVE: CASE EVENT DATE: 200606
